FAERS Safety Report 23348099 (Version 1)
Quarter: 2023Q4

REPORT INFORMATION
  Report Type: Spontaneous
  Country: US (occurrence: None)
  Receive Date: 20231228
  Receipt Date: 20231228
  Transmission Date: 20240110
  Serious: Yes (Other)
  Sender: FDA-Public Use
  Company Number: None

PATIENT
  Age: 15 Year
  Sex: Male

DRUGS (3)
  1. TETRABENAZINE [Suspect]
     Active Substance: TETRABENAZINE
     Indication: Tourette^s disorder
     Dosage: 1/2 TABLET BID BY MOUTH
     Route: 048
     Dates: start: 20231118, end: 20231213
  2. BASAGLAR [Concomitant]
     Active Substance: INSULIN GLARGINE
  3. HUMALOG [Concomitant]
     Active Substance: INSULIN LISPRO

REACTIONS (2)
  - Anxiety [None]
  - Catatonia [None]

NARRATIVE: CASE EVENT DATE: 20231213
